FAERS Safety Report 4860137-X (Version None)
Quarter: 2005Q4

REPORT INFORMATION
  Report Type: 
  Country: None (occurrence: None)
  Receive Date: 20051219
  Receipt Date: 20050314
  Transmission Date: 20060501
  Serious: Yes (Hospitalization, Other)
  Sender: FDA-Public Use
  Company Number: US-MERCK-0503USA03902

PATIENT
  Age: 83 Year
  Sex: Female
  Weight: 73 kg

DRUGS (6)
  1. VIOXX [Suspect]
     Indication: ARTHRITIS
     Route: 048
     Dates: start: 20000825, end: 20040929
  2. VIOXX [Suspect]
     Route: 048
     Dates: start: 20040712, end: 20040929
  3. AMBIEN [Concomitant]
     Route: 065
  4. LOTREL [Concomitant]
     Route: 065
  5. ZESTRIL [Concomitant]
     Route: 065
  6. VALIUM [Concomitant]
     Route: 065

REACTIONS (4)
  - CEREBRAL INFARCTION [None]
  - CEREBROVASCULAR ACCIDENT [None]
  - DEPRESSION [None]
  - MULTI-ORGAN DISORDER [None]
